FAERS Safety Report 25189767 (Version 1)
Quarter: 2025Q2

REPORT INFORMATION
  Report Type: Spontaneous
  Country: US (occurrence: US)
  Receive Date: 20250411
  Receipt Date: 20250411
  Transmission Date: 20250716
  Serious: Yes (Hospitalization, Other)
  Sender: SANDOZ
  Company Number: US-NOVPHSZ-PHHY2017US118126

PATIENT
  Age: 61 Year
  Sex: Female

DRUGS (12)
  1. ESOMEPRAZOLE [Concomitant]
     Active Substance: ESOMEPRAZOLE
     Indication: Product used for unknown indication
     Dosage: 40 MG, QD
     Route: 048
  2. SALMETEROL [Concomitant]
     Active Substance: SALMETEROL
     Indication: Product used for unknown indication
     Dosage: 50 UG, BID
     Route: 055
  3. TIOTROPIUM [Concomitant]
     Active Substance: TIOTROPIUM
     Indication: Product used for unknown indication
     Dosage: 18 UG, QD
     Route: 055
  4. FLUTICASONE [Interacting]
     Active Substance: FLUTICASONE
     Indication: Chronic sinusitis
     Dosage: 500 UG, BID
     Route: 055
  5. FLUTICASONE PROPIONATE\SALMETEROL XINAFOATE [Interacting]
     Active Substance: FLUTICASONE PROPIONATE\SALMETEROL XINAFOATE
     Indication: Chronic obstructive pulmonary disease
     Dosage: 500 UG, 50 UG
     Route: 055
  6. FLUTICASONE PROPIONATE\SALMETEROL XINAFOATE [Interacting]
     Active Substance: FLUTICASONE PROPIONATE\SALMETEROL XINAFOATE
     Indication: Chronic sinusitis
  7. MOMETASONE [Interacting]
     Active Substance: MOMETASONE
     Indication: Chronic obstructive pulmonary disease
     Dosage: 50 UG, QD
     Route: 045
  8. MOMETASONE [Interacting]
     Active Substance: MOMETASONE
     Indication: Chronic sinusitis
  9. VORICONAZOLE [Interacting]
     Active Substance: VORICONAZOLE
     Dosage: 100 MG, Q12H (2.2 MG/KG)
     Route: 048
  10. VORICONAZOLE [Interacting]
     Active Substance: VORICONAZOLE
     Indication: Pneumonia staphylococcal
     Dosage: 100 MG, BID
     Route: 065
  11. VORICONAZOLE [Interacting]
     Active Substance: VORICONAZOLE
     Dosage: 200 MG, Q12H (4.5 MG/KG FOR 5 MONTHS)
     Route: 048
  12. VORICONAZOLE [Interacting]
     Active Substance: VORICONAZOLE
     Dosage: 200 MG, BID
     Route: 048

REACTIONS (8)
  - Central obesity [Recovering/Resolving]
  - Hypothalamic pituitary adrenal axis suppression [Unknown]
  - Cortisol decreased [Recovering/Resolving]
  - Drug level increased [Unknown]
  - Cushing^s syndrome [Recovering/Resolving]
  - Adrenal insufficiency [Recovering/Resolving]
  - Weight increased [Recovering/Resolving]
  - Drug interaction [Recovering/Resolving]
